FAERS Safety Report 18302925 (Version 2)
Quarter: 2020Q4

REPORT INFORMATION
  Report Type: Spontaneous
  Country: DK (occurrence: DK)
  Receive Date: 20200924
  Receipt Date: 20201006
  Transmission Date: 20210113
  Serious: Yes (Hospitalization)
  Sender: FDA-Public Use
  Company Number: DK-AUROBINDO-AUR-APL-2020-048928

PATIENT
  Age: 34 Year
  Sex: Female
  Weight: 72 kg

DRUGS (2)
  1. SERTRALINE FILM-COATED TABLETS 100MG [Suspect]
     Active Substance: SERTRALINE HYDROCHLORIDE
     Indication: DEPRESSION
     Dosage: 200 MILLIGRAM, ONCE A DAY
     Route: 048
     Dates: start: 20110101
  2. EFEXOR [Suspect]
     Active Substance: VENLAFAXINE HYDROCHLORIDE
     Indication: DEPRESSION
     Dosage: 75 MILLIGRAM (1-2 TIMES DAILY)
     Route: 048
     Dates: start: 20030405

REACTIONS (3)
  - Sleep disorder [Recovering/Resolving]
  - Somnambulism [Recovering/Resolving]
  - Alcohol abuse [Recovered/Resolved]

NARRATIVE: CASE EVENT DATE: 20030601
